FAERS Safety Report 8735323 (Version 2)
Quarter: 2012Q4

REPORT INFORMATION
  Report Type: 
  Country: AR (occurrence: AR)
  Receive Date: 20120822
  Receipt Date: 20120905
  Transmission Date: 20130627
  Serious: No
  Sender: FDA-Public Use
  Company Number: AR-AMGEN-ARGSP2012017409

PATIENT
  Age: 39 Year
  Sex: Male

DRUGS (6)
  1. ENBREL [Suspect]
     Indication: ANKYLOSING SPONDYLITIS
     Dosage: 50 mg, weekly
     Route: 058
     Dates: start: 20120202, end: 201203
  2. METHOTREXATE [Concomitant]
     Dosage: UNK
  3. CLONAZEPAM [Concomitant]
     Dosage: UNK
  4. OMEPRAZOLE [Concomitant]
     Dosage: UNK
  5. AZULFIDINE [Concomitant]
     Dosage: UNK
  6. NAPROXEN [Concomitant]
     Dosage: UNK

REACTIONS (11)
  - Arthralgia [Recovering/Resolving]
  - Neck pain [Recovering/Resolving]
  - Deformity [Not Recovered/Not Resolved]
  - Joint swelling [Unknown]
  - Insomnia [Unknown]
  - Pain [Unknown]
  - Pain in extremity [Recovering/Resolving]
  - Oedema peripheral [Unknown]
  - Swelling [Unknown]
  - Tinea pedis [Unknown]
  - Drug ineffective [Not Recovered/Not Resolved]
